FAERS Safety Report 18911738 (Version 1)
Quarter: 2021Q1

REPORT INFORMATION
  Report Type: Spontaneous
  Country: GB (occurrence: GB)
  Receive Date: 20210218
  Receipt Date: 20210218
  Transmission Date: 20210420
  Serious: Yes (Life-Threatening, Hospitalization)
  Sender: FDA-Public Use
  Company Number: GB-FERRINGPH-2021FE00871

PATIENT
  Sex: Female

DRUGS (1)
  1. DESMOPRESSIN [Suspect]
     Active Substance: DESMOPRESSIN
     Indication: DIABETES INSIPIDUS
     Dosage: 3 PUFFS PER DAY
     Route: 065

REACTIONS (10)
  - Hyponatraemia [Recovered/Resolved]
  - Body temperature fluctuation [Unknown]
  - Hypertension [Recovered/Resolved]
  - Myocardial infarction [Recovered/Resolved]
  - Cerebral haemorrhage [Recovered/Resolved]
  - Cytomegalovirus infection [Recovered/Resolved]
  - Overdose [Unknown]
  - Recalled product administered [Unknown]
  - Renal pain [Recovered/Resolved]
  - Out of specification product use [Unknown]

NARRATIVE: CASE EVENT DATE: 20190728
